FAERS Safety Report 12218794 (Version 3)
Quarter: 2016Q2

REPORT INFORMATION
  Report Type: Spontaneous
  Country: FR (occurrence: FR)
  Receive Date: 20160329
  Receipt Date: 20160502
  Transmission Date: 20160815
  Serious: Yes (Hospitalization, Other)
  Sender: FDA-Public Use
  Company Number: FR-BAXTER-2016BAX014391

PATIENT
  Age: 49 Year
  Sex: Female

DRUGS (15)
  1. NAVELBINE [Suspect]
     Active Substance: VINORELBINE TARTRATE
     Indication: BREAST CANCER METASTATIC
     Dosage: 5 CYCLES, ON DAY 1 AND DAY 8, CUMULATIVE DOSE
     Route: 042
     Dates: start: 200008, end: 200011
  2. TAXOTERE [Suspect]
     Active Substance: DOCETAXEL
     Indication: BREAST CANCER METASTATIC
     Dosage: 5 CYCLES
     Route: 042
     Dates: start: 200011, end: 200103
  3. ENDOXAN 1000 MG, POUDRE POUR SOLUTION INJECTABLE [Suspect]
     Active Substance: CYCLOPHOSPHAMIDE
     Indication: INVASIVE DUCTAL BREAST CARCINOMA
     Dosage: 6 CYCLES
     Route: 042
     Dates: start: 199603, end: 199607
  4. NOVANTRONE [Suspect]
     Active Substance: MITOXANTRONE HYDROCHLORIDE
     Indication: ADJUVANT THERAPY
  5. FLUOROURACIL. [Suspect]
     Active Substance: FLUOROURACIL
     Indication: INVASIVE DUCTAL BREAST CARCINOMA
     Dosage: 6 COURSES
     Route: 042
     Dates: start: 199603, end: 199607
  6. FLUOROURACIL. [Suspect]
     Active Substance: FLUOROURACIL
     Dosage: 5 CYCLES
     Route: 065
     Dates: start: 20010406, end: 20010807
  7. AROMASINE [Suspect]
     Active Substance: EXEMESTANE
     Indication: HORMONE THERAPY
     Route: 065
     Dates: start: 201210
  8. AFINITOR [Suspect]
     Active Substance: EVEROLIMUS
     Route: 048
     Dates: start: 20150302, end: 20150923
  9. AFINITOR [Suspect]
     Active Substance: EVEROLIMUS
     Route: 048
     Dates: start: 20151029, end: 20151205
  10. NOVANTRONE [Suspect]
     Active Substance: MITOXANTRONE HYDROCHLORIDE
     Indication: INVASIVE DUCTAL BREAST CARCINOMA
     Route: 042
     Dates: start: 19960227
  11. NOVANTRONE [Suspect]
     Active Substance: MITOXANTRONE HYDROCHLORIDE
     Indication: CHEMOTHERAPY
     Dosage: 6 CYCLES, CUMULATIVE DOSE
     Route: 042
     Dates: start: 199603, end: 199607
  12. FEMARA [Suspect]
     Active Substance: LETROZOLE
     Indication: HORMONE THERAPY
     Route: 065
     Dates: start: 20010807, end: 201107
  13. TAXOL [Suspect]
     Active Substance: PACLITAXEL
     Indication: BREAST CANCER METASTATIC
     Dosage: 5 CYCLES
     Route: 042
     Dates: start: 20010406, end: 20010807
  14. AFINITOR [Suspect]
     Active Substance: EVEROLIMUS
     Indication: BREAST CANCER METASTATIC
     Route: 048
     Dates: start: 20150216, end: 20150302
  15. FARMORUBICINE [Suspect]
     Active Substance: EPIRUBICIN HYDROCHLORIDE
     Indication: BREAST CANCER METASTATIC
     Dosage: 5 CYCLES, ON DAY 1, CUMULATIVE DOSE
     Route: 042
     Dates: start: 200008, end: 200011

REACTIONS (12)
  - Osteopenia [Unknown]
  - Interstitial lung disease [Unknown]
  - Toxicity to various agents [Unknown]
  - Hypermetabolism [Unknown]
  - Metastases to lung [Unknown]
  - Ejection fraction decreased [Unknown]
  - Depression [Unknown]
  - Metastases to lymph nodes [Unknown]
  - Cardiac failure [Not Recovered/Not Resolved]
  - Lacrimation increased [Unknown]
  - Metastases to lung [Unknown]
  - Metastases to lymph nodes [Unknown]

NARRATIVE: CASE EVENT DATE: 200007
